FAERS Safety Report 4951911-X (Version None)
Quarter: 2006Q1

REPORT INFORMATION
  Report Type: 
  Country: None (occurrence: None)
  Receive Date: 20060320
  Receipt Date: 20060306
  Transmission Date: 20060701
  Serious: Yes (Hospitalization)
  Sender: FDA-Public Use
  Company Number: 2006033595

PATIENT
  Age: 3 Year
  Sex: Female

DRUGS (1)
  1. GENOTROPIN [Suspect]
     Indication: ILL-DEFINED DISORDER
     Dosage: 0.4 MG (0.4 MG, 1 IN 1 D), SUBCUTANEOUS
     Route: 058
     Dates: start: 20060213

REACTIONS (2)
  - FATIGUE [None]
  - NIGHTMARE [None]
